FAERS Safety Report 14037185 (Version 1)
Quarter: 2017Q4

REPORT INFORMATION
  Report Type: Spontaneous
  Country: US (occurrence: None)
  Receive Date: 20171003
  Receipt Date: 20171003
  Transmission Date: 20180321
  Serious: Yes (Hospitalization)
  Sender: FDA-Public Use
  Company Number: None

PATIENT
  Age: 60 Year
  Sex: Male
  Weight: 133.26 kg

DRUGS (1)
  1. IOPAMIDOL [Suspect]
     Active Substance: IOPAMIDOL
     Indication: CHOLANGIOCARCINOMA
     Route: 042
     Dates: start: 20170828, end: 20170828

REACTIONS (9)
  - Vomiting [None]
  - Nausea [None]
  - Dysphonia [None]
  - Urticaria [None]
  - Pruritus [None]
  - Angioedema [None]
  - Swollen tongue [None]
  - Swelling face [None]
  - Contrast media allergy [None]

NARRATIVE: CASE EVENT DATE: 20170828
